FAERS Safety Report 15355530 (Version 1)
Quarter: 2018Q3

REPORT INFORMATION
  Report Type: Spontaneous
  Country: DE (occurrence: DE)
  Receive Date: 20180906
  Receipt Date: 20180906
  Transmission Date: 20181010
  Serious: Yes (Other)
  Sender: FDA-Public Use
  Company Number: DE-HETERO CORPORATE-HET2018DE00883

PATIENT

DRUGS (1)
  1. ESCITALOPRAM [Suspect]
     Active Substance: ESCITALOPRAM OXALATE
     Indication: DEPRESSION
     Dosage: 1X T?GLICH MORGENS
     Route: 048
     Dates: start: 20180620

REACTIONS (6)
  - Diarrhoea [Recovered/Resolved]
  - Rectal haemorrhage [Unknown]
  - Nausea [Recovered/Resolved]
  - Dyschezia [Unknown]
  - Dizziness [Recovered/Resolved]
  - Vomiting [Recovered/Resolved]

NARRATIVE: CASE EVENT DATE: 20180623
